FAERS Safety Report 6538349-9 (Version None)
Quarter: 2010Q1

REPORT INFORMATION
  Report Type: 
  Country: None (occurrence: None)
  Receive Date: 20100111
  Receipt Date: 20091230
  Transmission Date: 20100710
  Serious: Yes (Life-Threatening, Hospitalization)
  Sender: FDA-Public Use
  Company Number: 2009AP005069

PATIENT
  Age: 24 Year
  Sex: Female

DRUGS (7)
  1. SERTRALINE HYDROCHLORIDE [Suspect]
  2. AMOXICILLIN TRIHYDRATE [Suspect]
  3. ANTIBIOTICS (ANTIBIOTICS) [Suspect]
  4. CLOZAPINE [Suspect]
     Indication: SCHIZOPHRENIA
     Dosage: 1000 MG; PO; 700 MG; PO; QD
     Route: 048
     Dates: start: 20030623, end: 20060504
  5. HYOSCINE HBR HYT [Suspect]
  6. MOCLOBEMIDE (MOCLOBEMIDE) [Concomitant]
  7. SULPIRIDE (SULPIRIDE) [Concomitant]

REACTIONS (7)
  - ALANINE AMINOTRANSFERASE INCREASED [None]
  - HAEMOGLOBIN DECREASED [None]
  - LIVER FUNCTION TEST ABNORMAL [None]
  - LOSS OF CONSCIOUSNESS [None]
  - MULTIPLE DRUG OVERDOSE [None]
  - VOMITING [None]
  - WEIGHT DECREASED [None]
